FAERS Safety Report 21087756 (Version 1)
Quarter: 2022Q3

REPORT INFORMATION
  Report Type: Report from Study
  Country: BR (occurrence: BR)
  Receive Date: 20220715
  Receipt Date: 20220715
  Transmission Date: 20221026
  Serious: Yes (Other)
  Sender: FDA-Public Use
  Company Number: BR-JNJFOC-20220725133

PATIENT
  Age: 15 Year
  Sex: Female
  Weight: 68 kg

DRUGS (1)
  1. INFLIXIMAB [Suspect]
     Active Substance: INFLIXIMAB
     Indication: Crohn^s disease
     Route: 041
     Dates: start: 2020

REACTIONS (3)
  - Crohn^s disease [Unknown]
  - Anxiety [Unknown]
  - Inappropriate schedule of product administration [Unknown]
